FAERS Safety Report 25460682 (Version 1)
Quarter: 2025Q2

REPORT INFORMATION
  Report Type: Spontaneous
  Country: US (occurrence: None)
  Receive Date: 20250619
  Receipt Date: 20250619
  Transmission Date: 20250716
  Serious: Yes (Hospitalization)
  Sender: FDA-CTU
  Company Number: None

PATIENT
  Age: 31 Year
  Sex: Female

DRUGS (15)
  1. SILDENAFIL [Suspect]
     Active Substance: SILDENAFIL
     Indication: Pulmonary hypertension
     Dosage: 20 MG TID ORAL ?
     Route: 048
     Dates: start: 20240128
  2. MYCOPHENOLIC ACID [Suspect]
     Active Substance: MYCOPHENOLIC ACID
     Indication: Systemic lupus erythematosus
     Dosage: 1080 MG BID ORAL ?
     Route: 048
     Dates: start: 20250211
  3. PREDNISONE [Concomitant]
     Active Substance: PREDNISONE
  4. CARVEDILOL [Concomitant]
     Active Substance: CARVEDILOL
  5. ALLOPURINOL [Concomitant]
     Active Substance: ALLOPURINOL
  6. PANTOPRAZOLE [Concomitant]
     Active Substance: PANTOPRAZOLE
  7. DAPSONE [Concomitant]
     Active Substance: DAPSONE
  8. HYDRALAZINE [Concomitant]
     Active Substance: HYDRALAZINE HYDROCHLORIDE
  9. HYDROXYCHLOROQUINE [Concomitant]
     Active Substance: HYDROXYCHLOROQUINE
  10. ESCITALOPRAM [Concomitant]
     Active Substance: ESCITALOPRAM OXALATE
  11. TRAZODONE [Concomitant]
     Active Substance: TRAZODONE HYDROCHLORIDE
  12. TORSEMIDE [Concomitant]
     Active Substance: TORSEMIDE
  13. NIFEDIPINE [Concomitant]
     Active Substance: NIFEDIPINE
  14. SODIUM BICARBONATE [Concomitant]
     Active Substance: SODIUM BICARBONATE
  15. MIRTAZAPINE [Concomitant]
     Active Substance: MIRTAZAPINE

REACTIONS (3)
  - Epistaxis [None]
  - Eye haemorrhage [None]
  - Activities of daily living decreased [None]
